FAERS Safety Report 8947553 (Version 1)
Quarter: 2012Q4

REPORT INFORMATION
  Report Type: 
  Country: US (occurrence: US)
  Receive Date: 20121205
  Receipt Date: 20121205
  Transmission Date: 20130627
  Serious: No
  Sender: FDA-Public Use
  Company Number: US-ASTRAZENECA-2012SE90404

PATIENT
  Age: 49 Year
  Sex: Female

DRUGS (3)
  1. NEXIUM [Suspect]
     Indication: GASTROOESOPHAGEAL REFLUX DISEASE
     Route: 048
  2. ALLIGN [Concomitant]
     Indication: GASTRIC DISORDER
  3. URELL [Concomitant]
     Indication: BLADDER DISORDER

REACTIONS (3)
  - Abdominal discomfort [Unknown]
  - Malaise [Unknown]
  - Intentional drug misuse [Unknown]
